FAERS Safety Report 19667310 (Version 2)
Quarter: 2021Q3

REPORT INFORMATION
  Report Type: Spontaneous
  Country: CN (occurrence: CN)
  Receive Date: 20210806
  Receipt Date: 20210823
  Transmission Date: 20211014
  Serious: Yes (Other)
  Sender: FDA-Public Use
  Company Number: CN-ACCORD-234657

PATIENT
  Age: 28 Year
  Sex: Female

DRUGS (4)
  1. BEVACIZUMAB. [Suspect]
     Active Substance: BEVACIZUMAB
     Indication: RECTAL CANCER
     Dosage: ON DAY 1 (ON SECOND CYCLE), GIVEN EVERY THREE WEEKS
     Dates: start: 20180423
  2. IRINOTECAN [Suspect]
     Active Substance: IRINOTECAN
     Indication: RECTAL CANCER
     Dosage: ON DAY 1, EVERY THREE WEEKS, 1200 MG/M2
     Dates: start: 20180423
  3. CAPECITABINE. [Suspect]
     Active Substance: CAPECITABINE
     Indication: RECTAL CANCER
     Dosage: PER DAY FROM DAY 2 TO 15?30?DEC?2018, ORAL, 8 CYCLES, 190400 MG/M2
     Dates: start: 20180423
  4. OXALIPLATIN. [Suspect]
     Active Substance: OXALIPLATIN
     Indication: RECTAL CANCER
     Dosage: ON DAY 1, EVERY THREE WEEKS, 800 MG/M2
     Dates: start: 20180423

REACTIONS (3)
  - Vomiting [Unknown]
  - Neutropenia [Unknown]
  - Neurotoxicity [Unknown]

NARRATIVE: CASE EVENT DATE: 2018
